FAERS Safety Report 20209460 (Version 1)
Quarter: 2021Q4

REPORT INFORMATION
  Report Type: Spontaneous
  Country: US (occurrence: US)
  Receive Date: 20211221
  Receipt Date: 20211221
  Transmission Date: 20220303
  Serious: Yes (Hospitalization, Other)
  Sender: FDA-Public Use
  Company Number: US-STRIDES ARCOLAB LIMITED-2021SP031225

PATIENT
  Age: 80 Year
  Sex: Male

DRUGS (14)
  1. PREDNISOLONE [Suspect]
     Active Substance: PREDNISOLONE
     Indication: Double hit lymphoma
     Dosage: 100 MILLIGRAM/SQ. METER, CYCLICAL AS A PART OF R-CHOP REGIMEN
     Route: 065
  2. PREDNISOLONE [Suspect]
     Active Substance: PREDNISOLONE
     Dosage: 60 MILLIGRAM/SQ. METER PER DAY AS A PART OF R-EPOCH REGIMEN
     Route: 065
  3. CARBOPLATIN [Suspect]
     Active Substance: CARBOPLATIN
     Indication: Double hit lymphoma
     Dosage: UNK
     Route: 065
  4. DOXORUBICIN [Suspect]
     Active Substance: DOXORUBICIN
     Indication: Double hit lymphoma
     Dosage: 50 MILLIGRAM/SQ. METER, CYCLICAL AS A PART OF R-CHOP REGIMEN
     Route: 065
  5. DOXORUBICIN [Suspect]
     Active Substance: DOXORUBICIN
     Dosage: 10 MILLIGRAM/SQ. METER PER DAY (AS A PART OF R-EPOCH REGIMEN)
     Route: 065
  6. RITUXIMAB [Suspect]
     Active Substance: RITUXIMAB
     Indication: Double hit lymphoma
     Dosage: 375 MILLIGRAM/SQ. METER, CYCLICAL (AS A PART OF R-CHOP AND R-EPOCH REGIMEN)
     Route: 065
  7. RITUXIMAB [Suspect]
     Active Substance: RITUXIMAB
     Dosage: 2 CYCLES OF RICE CHEMOIMMUNOTHERAPY
     Route: 065
  8. CYCLOPHOSPHAMIDE [Suspect]
     Active Substance: CYCLOPHOSPHAMIDE
     Indication: Double hit lymphoma
     Dosage: 750 MILLIGRAM/SQ. METER (AS A PART OF R-CHOP AND R-EPOCH REGIMEN)
     Route: 065
  9. VINCRISTINE [Suspect]
     Active Substance: VINCRISTINE
     Indication: Double hit lymphoma
     Dosage: 1.4 MILLIGRAM/SQ. METER, CYCLICAL (AS A PART OF R-CHOP REGIMEN)
     Route: 065
  10. VINCRISTINE [Suspect]
     Active Substance: VINCRISTINE
     Dosage: 0.4 MILLIGRAM/SQ. METER PER DAY (AS A PART OF R-EPOCH REGIMEN)
     Route: 065
  11. ETOPOSIDE [Suspect]
     Active Substance: ETOPOSIDE
     Indication: Double hit lymphoma
     Dosage: 50 MILLIGRAM/SQ. METER PER DAY (AS A PART OF R-EPOCH REGIMEN)
     Route: 065
  12. ETOPOSIDE [Suspect]
     Active Substance: ETOPOSIDE
     Dosage: UNK, GIVEN AT REDUCED DOSES
     Route: 065
  13. METHOTREXATE [Concomitant]
     Active Substance: METHOTREXATE
     Indication: Prophylaxis
     Dosage: 15 MILLIGRAM
     Route: 037
  14. NEULASTA [Concomitant]
     Active Substance: PEGFILGRASTIM
     Indication: Prophylaxis
     Dosage: 6 MILLIGRAM; FREQ UNK
     Route: 058

REACTIONS (5)
  - Ejection fraction decreased [Unknown]
  - Anaemia [Unknown]
  - Thrombocytopenia [Unknown]
  - COVID-19 pneumonia [Unknown]
  - Off label use [Unknown]
